FAERS Safety Report 7595251-1 (Version None)
Quarter: 2011Q2

REPORT INFORMATION
  Report Type: 
  Country: None (occurrence: None)
  Receive Date: 20110620
  Receipt Date: 20110307
  Transmission Date: 20111010
  Serious: Yes (Hospitalization)
  Sender: FDA-Public Use
  Company Number: UTC-005583

PATIENT
  Age: 65 Year
  Sex: Female
  Weight: 118.1 kg

DRUGS (2)
  1. TRACLEER [Concomitant]
  2. TYVASO [Suspect]
     Indication: PULMONARY ARTERIAL HYPERTENSION
     Dosage: 4 IN 1 D, INHALATION
     Route: 055
     Dates: start: 20110201, end: 20110307

REACTIONS (2)
  - PNEUMONIA [None]
  - BRONCHITIS [None]
